FAERS Safety Report 7443216-2 (Version None)
Quarter: 2011Q2

REPORT INFORMATION
  Report Type: 
  Country: None (occurrence: None)
  Receive Date: 20110428
  Receipt Date: 20110407
  Transmission Date: 20111010
  Serious: Yes (Other)
  Sender: FDA-Public Use
  Company Number: B0712950A

PATIENT
  Age: 23 Year
  Sex: Male

DRUGS (2)
  1. LAMICTAL [Suspect]
     Indication: EPILEPSY
     Dosage: 300MG PER DAY
     Route: 065
     Dates: start: 20110325
  2. ARIPIPRAZOLE [Concomitant]
     Dosage: 15MG PER DAY
     Dates: start: 20081201

REACTIONS (3)
  - CONVULSION [None]
  - LOSS OF CONSCIOUSNESS [None]
  - DISORIENTATION [None]
